FAERS Safety Report 4414880-7 (Version None)
Quarter: 2004Q3

REPORT INFORMATION
  Report Type: 
  Country: None (occurrence: None)
  Receive Date: 20040804
  Receipt Date: 20040227
  Transmission Date: 20050211
  Serious: No
  Sender: FDA-Public Use
  Company Number: US-BRISTOL-MYERS SQUIBB COMPANY-12519906

PATIENT
  Sex: Female
  Weight: 100 kg

DRUGS (3)
  1. GLUCOVANCE [Suspect]
     Indication: DIABETES MELLITUS
     Route: 048
     Dates: start: 20040201, end: 20040227
  2. VASOTEC [Concomitant]
  3. DIOVAN [Concomitant]

REACTIONS (2)
  - MUSCULAR WEAKNESS [None]
  - URINARY INCONTINENCE [None]
